FAERS Safety Report 9069879 (Version 2)
Quarter: 2013Q1

REPORT INFORMATION
  Report Type: Report from Study
  Country: US (occurrence: US)
  Receive Date: 20130215
  Receipt Date: 20130228
  Transmission Date: 20140127
  Serious: Yes (Hospitalization, Other)
  Sender: FDA-Public Use
  Company Number: US-ABBOTT-13P-163-1046338-00

PATIENT
  Sex: Female
  Weight: 122.58 kg

DRUGS (12)
  1. HUMIRA [Suspect]
     Indication: SERONEGATIVE ARTHRITIS
     Dates: end: 2011
  2. HUMIRA [Suspect]
     Dates: start: 2011
  3. POTASSIUM CHLORIDE [Concomitant]
     Indication: BLOOD POTASSIUM DECREASED
  4. FOLIC ACID [Concomitant]
     Indication: PRODUCT USED FOR UNKNOWN INDICATION
  5. INDERAL [Concomitant]
     Indication: MIGRAINE
  6. LEVOTHYROXINE [Concomitant]
     Indication: HYPOTHYROIDISM
  7. DICLOFENAC [Concomitant]
     Indication: INFLAMMATION
  8. LORAZEPAM [Concomitant]
     Indication: INSOMNIA
  9. NEXIUM [Concomitant]
     Indication: HIATUS HERNIA
  10. NEXIUM [Concomitant]
     Indication: GASTROOESOPHAGEAL REFLUX DISEASE
  11. METHOTREXATE [Concomitant]
     Indication: SERONEGATIVE ARTHRITIS
  12. VITAMIN D [Concomitant]
     Indication: VITAMIN D DECREASED

REACTIONS (15)
  - Joint range of motion decreased [Unknown]
  - Arthritis [Unknown]
  - Ulnar nerve injury [Unknown]
  - Joint dislocation [Not Recovered/Not Resolved]
  - Neuropathy peripheral [Not Recovered/Not Resolved]
  - Periarthritis [Recovering/Resolving]
  - Hypoaesthesia [Unknown]
  - Upper extremity mass [Recovered/Resolved]
  - Gait disturbance [Not Recovered/Not Resolved]
  - Tendon rupture [Not Recovered/Not Resolved]
  - Asthenia [Not Recovered/Not Resolved]
  - Sensory loss [Not Recovered/Not Resolved]
  - Joint destruction [Not Recovered/Not Resolved]
  - Off label use [Not Recovered/Not Resolved]
  - Hepatic enzyme increased [Recovering/Resolving]
